FAERS Safety Report 7343560-3 (Version None)
Quarter: 2011Q1

REPORT INFORMATION
  Report Type: 
  Country: None (occurrence: None)
  Receive Date: 20110310
  Receipt Date: 20100518
  Transmission Date: 20110831
  Serious: No
  Sender: FDA-Public Use
  Company Number: A0860171A

PATIENT
  Age: 38 Year
  Sex: Male

DRUGS (1)
  1. NICORETTE [Suspect]
     Dates: start: 20100515, end: 20100515

REACTIONS (4)
  - CHEMICAL INJURY [None]
  - GINGIVAL ERYTHEMA [None]
  - HYPERSENSITIVITY [None]
  - THERMAL BURN [None]
